FAERS Safety Report 12745810 (Version 1)
Quarter: 2016Q3

REPORT INFORMATION
  Report Type: Spontaneous
  Country: US (occurrence: US)
  Receive Date: 20160914
  Receipt Date: 20160914
  Transmission Date: 20161109
  Serious: No
  Sender: FDA-Public Use
  Company Number: None

PATIENT
  Age: 60 Year
  Sex: Male

DRUGS (1)
  1. AFINITOR [Suspect]
     Active Substance: EVEROLIMUS
     Indication: CARCINOID TUMOUR

REACTIONS (4)
  - Skin disorder [None]
  - Acne [None]
  - Muscle spasms [None]
  - Stomatitis [None]

NARRATIVE: CASE EVENT DATE: 20160824
